FAERS Safety Report 4872480-9 (Version None)
Quarter: 2005Q4

REPORT INFORMATION
  Report Type: 
  Country: None (occurrence: None)
  Receive Date: 20051201
  Receipt Date: 20050803
  Transmission Date: 20060501
  Serious: No
  Sender: FDA-Public Use
  Company Number: 2005PV000839

PATIENT
  Age: 71 Year
  Sex: Female
  Weight: 92.0802 kg

DRUGS (8)
  1. BYETTA [Suspect]
     Indication: DIABETES MELLITUS NON-INSULIN-DEPENDENT
     Dosage: 5 MCG; BID; SC
     Route: 058
     Dates: start: 20050727
  2. LANTUS [Concomitant]
  3. HUMALOG [Concomitant]
  4. ZOCOR [Concomitant]
  5. CARDENE [Concomitant]
  6. POTASSIUM CHLORIDE [Concomitant]
  7. CHLORTHALIDONE [Concomitant]
  8. CALCIUM GLUCONATE [Concomitant]

REACTIONS (4)
  - BLOOD GLUCOSE INCREASED [None]
  - DECREASED APPETITE [None]
  - NAUSEA [None]
  - WEIGHT DECREASED [None]
